FAERS Safety Report 10312574 (Version 3)
Quarter: 2014Q3

REPORT INFORMATION
  Report Type: Spontaneous
  Country: JP (occurrence: JP)
  Receive Date: 20140718
  Receipt Date: 20140915
  Transmission Date: 20150326
  Serious: Yes (Hospitalization, Other)
  Sender: FDA-Public Use
  Company Number: JP-BRISTOL-MYERS SQUIBB COMPANY-21143979

PATIENT
  Age: 71 Year
  Sex: Male
  Weight: 63 kg

DRUGS (2)
  1. ELIQUIS [Suspect]
     Active Substance: APIXABAN
     Indication: CEREBROVASCULAR ACCIDENT PROPHYLAXIS
     Dosage: TABLET
     Route: 048
     Dates: start: 20140613, end: 20140623
  2. PRADAXA [Suspect]
     Active Substance: DABIGATRAN ETEXILATE MESYLATE

REACTIONS (9)
  - Activated partial thromboplastin time prolonged [Recovering/Resolving]
  - Shock [Unknown]
  - Enteritis [Unknown]
  - Diarrhoea [Unknown]
  - Prothrombin time ratio increased [Recovering/Resolving]
  - Upper gastrointestinal haemorrhage [Recovered/Resolved]
  - Anaemia [Unknown]
  - Decreased appetite [Unknown]
  - Prerenal failure [Unknown]

NARRATIVE: CASE EVENT DATE: 20140615
